FAERS Safety Report 8364545-4 (Version None)
Quarter: 2012Q2

REPORT INFORMATION
  Report Type: 
  Country: None (occurrence: None)
  Receive Date: 20120516
  Receipt Date: 20120503
  Transmission Date: 20120825
  Serious: Yes (Life-Threatening)
  Sender: FDA-Public Use
  Company Number: CH-ROCHE-1067420

PATIENT
  Age: 84 Year
  Sex: Female

DRUGS (12)
  1. CITALOPRAM HYDROBROMIDE [Suspect]
     Indication: DEPRESSION
     Route: 048
  2. TEMESTA [Concomitant]
     Indication: ANXIETY DISORDER
     Route: 048
  3. ZOFRAN [Suspect]
     Indication: NAUSEA
     Route: 041
     Dates: start: 20120215, end: 20120304
  4. DIGOXIN [Concomitant]
     Indication: ATRIAL FIBRILLATION
     Route: 048
  5. ZOLPIDEM [Concomitant]
     Indication: SLEEP DISORDER
     Route: 048
  6. LAXOBERON [Concomitant]
     Indication: CONSTIPATION
     Route: 048
     Dates: start: 20120125
  7. MORPHINE [Concomitant]
     Route: 048
     Dates: start: 20120125
  8. COLECALCIFEROL [Concomitant]
     Indication: OSTEOPOROSIS
     Route: 048
  9. ZOFRAN [Suspect]
     Indication: VOMITING
  10. FLOXAPEN [Concomitant]
     Route: 041
  11. TORSEMIDE [Suspect]
     Indication: PRODUCT USED FOR UNKNOWN INDICATION
     Route: 048
  12. SINTROM [Suspect]
     Indication: ATRIAL FIBRILLATION
     Route: 048
     Dates: start: 20120216, end: 20120219

REACTIONS (2)
  - INTERNATIONAL NORMALISED RATIO INCREASED [None]
  - DRUG INTERACTION [None]
